FAERS Safety Report 5363333-0 (Version None)
Quarter: 2007Q2

REPORT INFORMATION
  Report Type: 
  Country: None (occurrence: None)
  Receive Date: 20070620
  Receipt Date: 20070618
  Transmission Date: 20071010
  Serious: No
  Sender: FDA-Public Use
  Company Number: US-BAXTER-2007BH005492

PATIENT
  Age: 51 Year
  Sex: Male

DRUGS (3)
  1. NITROGLYCERIN IN DEXTROSE 5% [Suspect]
     Indication: CARDIAC OPERATION
     Dosage: DOSE UNIT:UNKNOWN
     Route: 042
     Dates: start: 20070613, end: 20070601
  2. DOPAMINE HCL [Concomitant]
     Indication: CARDIAC OPERATION
     Dosage: DOSE UNIT:UNKNOWN
     Route: 065
     Dates: start: 20070613, end: 20070601
  3. PROPRANOLOL [Concomitant]
     Indication: CARDIAC OPERATION
     Dosage: DOSE UNIT:UNKNOWN
     Route: 065
     Dates: start: 20070613, end: 20070601

REACTIONS (3)
  - ACCIDENTAL OVERDOSE [None]
  - BLOOD PRESSURE DECREASED [None]
  - DEVICE FAILURE [None]
